FAERS Safety Report 18712299 (Version 7)
Quarter: 2021Q2

REPORT INFORMATION
  Report Type: Report from Study
  Country: DE (occurrence: DE)
  Receive Date: 20210107
  Receipt Date: 20210419
  Transmission Date: 20210717
  Serious: Yes (Hospitalization)
  Sender: FDA-Public Use
  Company Number: DE-PFIZER INC-2020518632

PATIENT
  Age: 79 Year
  Sex: Female
  Weight: 52 kg

DRUGS (28)
  1. AXITINIB [Suspect]
     Active Substance: AXITINIB
     Dosage: 3 MG, 2X/DAY
     Route: 048
     Dates: start: 20201203, end: 20201222
  2. AXITINIB [Suspect]
     Active Substance: AXITINIB
     Dosage: 3 MG, TOTAL DAILY DOSE
     Route: 048
     Dates: start: 20210113, end: 20210113
  3. OCTENISEPT [OCTENIDINE HYDROCHLORIDE;PHENOXYETHANOL] [Concomitant]
     Dosage: 20 MG
     Dates: start: 20170512
  4. PEMBROLIZUMAB. [Suspect]
     Active Substance: PEMBROLIZUMAB
     Dosage: 200 MG, EVERY 3 WEEKS
     Route: 042
     Dates: start: 20190109, end: 20190109
  5. BETAISODONA [Concomitant]
     Active Substance: POVIDONE-IODINE
     Dosage: 1 DF
     Dates: start: 20170505
  6. DEXPANTHENOL. [Concomitant]
     Active Substance: DEXPANTHENOL
     Dosage: 0.5 ML
     Dates: start: 20190831
  7. PRASUGREL HYDROCHLORIDE [Concomitant]
     Active Substance: PRASUGREL HYDROCHLORIDE
     Dosage: 5 MG
     Dates: start: 20200109
  8. ATORVASTATIN [Concomitant]
     Active Substance: ATORVASTATIN
     Dosage: 20 MG
     Dates: start: 20191221
  9. PANTOPRAZOLE [Concomitant]
     Active Substance: PANTOPRAZOLE
     Dosage: 40 MG
     Dates: start: 20190525, end: 20210103
  10. DOLO?DOBENDAN [Concomitant]
     Active Substance: BENZOCAINE\CETYLPYRIDINIUM CHLORIDE
     Dosage: 1 DF
     Dates: start: 20170505
  11. METOCLOPRAMIDE HYDROCHLORIDE. [Concomitant]
     Active Substance: METOCLOPRAMIDE HYDROCHLORIDE
     Dosage: 10 MG
     Dates: start: 20170517
  12. L?THYROXINE [LEVOTHYROXINE SODIUM] [Concomitant]
     Active Substance: LEVOTHYROXINE SODIUM
     Indication: HYPOTHYROIDISM
     Dosage: 125 UG
     Dates: start: 20201022, end: 20201222
  13. POTASSIUM CHLORIDE. [Concomitant]
     Active Substance: POTASSIUM CHLORIDE
     Dosage: 40 MMOL
     Dates: start: 20201223, end: 20201223
  14. TRIAMCINOLONE [Concomitant]
     Active Substance: TRIAMCINOLONE
     Dosage: 0.1 %
     Dates: start: 20170422
  15. CHAMOMILE [Concomitant]
     Active Substance: CHAMOMILE
     Dosage: 10 L
     Dates: start: 20170425
  16. VAGISAN [DL? LACTIC ACID;SODIUM LACTATE] [Concomitant]
     Dosage: 1 DF
     Dates: start: 20170505
  17. MINOXIDIL. [Concomitant]
     Active Substance: MINOXIDIL
     Dosage: 1 ML
     Dates: start: 20190831
  18. GLANDOMED [Concomitant]
     Dosage: 3 DF
     Route: 061
     Dates: start: 20201107
  19. CETIRIZIN [Concomitant]
     Active Substance: CETIRIZINE HYDROCHLORIDE
     Dosage: 10 MG
     Dates: start: 20170422
  20. NOVAMINSULFON [Concomitant]
     Active Substance: METAMIZOLE
     Dosage: 500 MG
     Dates: start: 20170910
  21. RATIOPHARM VITAMINA B?KOMPLEX [Concomitant]
     Dosage: 1 DF
     Dates: start: 20201107
  22. AXITINIB [Suspect]
     Active Substance: AXITINIB
     Indication: METASTATIC RENAL CELL CARCINOMA
     Dosage: 5 MG, 2X/DAY (BID); FLUCTATED DOSAGE AND FREQUENCY
     Route: 048
     Dates: start: 20170125, end: 20201202
  23. FENISTIL HYDROCORT CREME [Concomitant]
     Dosage: 1 DF
     Dates: start: 20201118
  24. AXITINIB [Suspect]
     Active Substance: AXITINIB
     Dosage: 3 MG, 2X/DAY
     Route: 048
     Dates: start: 20201223, end: 20210113
  25. PEMBROLIZUMAB. [Suspect]
     Active Substance: PEMBROLIZUMAB
     Indication: METASTATIC RENAL CELL CARCINOMA
     Dosage: 200 MG, EVERY 3 WEEKS (INFUSION VOLUME: 108 ML)
     Route: 042
     Dates: start: 20170125, end: 20181219
  26. TANNOLACT [Concomitant]
     Active Substance: CRESOL\UREA
     Dosage: 0.4 %
     Dates: start: 20170505
  27. ASPIRIN [ACETYLSALICYLIC ACID] [Concomitant]
     Active Substance: ASPIRIN
     Dosage: 100 MG
     Dates: start: 20191221
  28. ALLOPURINOL. [Concomitant]
     Active Substance: ALLOPURINOL
     Dosage: 100 MG
     Dates: start: 20201021

REACTIONS (1)
  - Prerenal failure [Recovered/Resolved with Sequelae]

NARRATIVE: CASE EVENT DATE: 20201223
